FAERS Safety Report 8176897 (Version 3)
Quarter: 2012Q4

REPORT INFORMATION
  Report Type: Report from Study
  Country: GB (occurrence: GB)
  Receive Date: 20111012
  Receipt Date: 20121004
  Transmission Date: 20130627
  Serious: Yes (Death, Hospitalization)
  Sender: FDA-Public Use
  Company Number: GB-SANOFI-AVENTIS-2011SA064220

PATIENT
  Age: 83 Year
  Sex: Male
  Weight: 96 kg

DRUGS (15)
  1. CABAZITAXEL [Suspect]
     Indication: PROSTATE CANCER
     Route: 042
     Dates: start: 20110824, end: 20110824
  2. CABAZITAXEL [Suspect]
     Indication: PROSTATE CANCER
     Route: 042
     Dates: start: 20110914, end: 20110914
  3. PREDNISOLONE [Suspect]
     Indication: PROSTATE CANCER
     Route: 048
     Dates: start: 20110824, end: 20110928
  4. CLEXANE [Suspect]
     Indication: PROPHYLAXIS
  5. ZOLADEX [Concomitant]
  6. ASPIRIN [Concomitant]
  7. AMLODIPINE [Concomitant]
  8. IBUPROFEN [Concomitant]
  9. LOSARTAN [Concomitant]
  10. LOPERAMIDE [Concomitant]
  11. TAZOCIN [Concomitant]
  12. OXYBUTYNIN [Concomitant]
  13. TAMSULOSIN [Concomitant]
  14. OMEPRAZOLE [Concomitant]
  15. GENTAMICIN [Concomitant]

REACTIONS (2)
  - Gastrointestinal haemorrhage [Fatal]
  - Neutropenic infection [Fatal]
